FAERS Safety Report 15570623 (Version 2)
Quarter: 2018Q4

REPORT INFORMATION
  Report Type: Report from Study
  Country: JP (occurrence: JP)
  Receive Date: 20181031
  Receipt Date: 20181106
  Transmission Date: 20190205
  Serious: Yes (Hospitalization)
  Sender: FDA-Public Use
  Company Number: JP-ROCHE-2204396

PATIENT
  Age: 76 Year
  Sex: Female
  Weight: 45.5 kg

DRUGS (9)
  1. BASEN (JAPAN) [Concomitant]
     Route: 065
     Dates: start: 20090723
  2. DOCETAXEL. [Concomitant]
     Active Substance: DOCETAXEL
     Route: 065
     Dates: start: 20121126, end: 20130212
  3. BLINDED PERTUZUMAB [Suspect]
     Active Substance: PERTUZUMAB
     Indication: HER-2 POSITIVE BREAST CANCER
     Dosage: DATE OF MOST RECENT DOSE OF BLINDED PERTUZUMAB PRIOR TO SAE: 11/NOV/2013
     Route: 042
     Dates: start: 20121126
  4. TRASTUZUMAB. [Suspect]
     Active Substance: TRASTUZUMAB
     Indication: HER-2 POSITIVE BREAST CANCER
     Dosage: LOADING DOSE
     Route: 042
     Dates: start: 20121126, end: 20121126
  5. TRASTUZUMAB. [Suspect]
     Active Substance: TRASTUZUMAB
     Dosage: MAINTENANCE DOSE FOR 1 YEAR (MAXIMUM 18 CYCLES) (AS PER PROTOCOL). ON 11/NOV/2013, SHE RECEIVED THE
     Route: 042
  6. PARIET [Concomitant]
     Active Substance: RABEPRAZOLE SODIUM
     Route: 065
     Dates: start: 20120608
  7. SIMVASTATIN. [Concomitant]
     Active Substance: SIMVASTATIN
     Route: 065
     Dates: start: 19940501
  8. JANUVIA [Concomitant]
     Active Substance: SITAGLIPTIN PHOSPHATE
     Route: 065
     Dates: start: 20121012
  9. FEMARA [Concomitant]
     Active Substance: LETROZOLE
     Route: 065
     Dates: start: 20130617

REACTIONS (1)
  - Soft tissue sarcoma [Recovered/Resolved]

NARRATIVE: CASE EVENT DATE: 20180423
